FAERS Safety Report 10977164 (Version 3)
Quarter: 2015Q4

REPORT INFORMATION
  Report Type: Report from Study
  Country: US (occurrence: US)
  Receive Date: 20150402
  Receipt Date: 20151221
  Transmission Date: 20160304
  Serious: Yes (Hospitalization, Other)
  Sender: FDA-Public Use
  Company Number: US-AMGEN-USASL2015030618

PATIENT
  Age: 59 Year
  Sex: Male

DRUGS (1)
  1. ENBREL [Suspect]
     Active Substance: ETANERCEPT
     Indication: RHEUMATOID ARTHRITIS
     Dosage: 50 MG, QWK
     Route: 065
     Dates: start: 20040429

REACTIONS (14)
  - Rheumatoid arthritis [Unknown]
  - Neck pain [Recovering/Resolving]
  - Depression [Unknown]
  - Blood pressure increased [Unknown]
  - Cardiac disorder [Unknown]
  - Speech disorder [Unknown]
  - Musculoskeletal stiffness [Recovering/Resolving]
  - Cataract [Recovered/Resolved]
  - Bone prosthesis insertion [Unknown]
  - Asthenia [Not Recovered/Not Resolved]
  - Feeling abnormal [Not Recovered/Not Resolved]
  - Hospitalisation [Recovered/Resolved]
  - Myocardial infarction [Unknown]
  - Mobility decreased [Recovering/Resolving]

NARRATIVE: CASE EVENT DATE: 2015
